FAERS Safety Report 6394178-0 (Version None)
Quarter: 2009Q4

REPORT INFORMATION
  Report Type: 
  Country: None (occurrence: None)
  Receive Date: 20091008
  Receipt Date: 20091005
  Transmission Date: 20100525
  Serious: Yes (Hospitalization)
  Sender: FDA-Public Use
  Company Number: SE-ABBOTT-09P-150-0600681-00

PATIENT
  Sex: Female

DRUGS (6)
  1. SEVOFLURANE [Suspect]
     Indication: ANAESTHESIA
     Dates: start: 20090902, end: 20090902
  2. PROPOFOL [Concomitant]
     Indication: INDUCTION OF ANAESTHESIA
     Dates: start: 20090902, end: 20090902
  3. FENTANYL-100 [Concomitant]
     Indication: ANAESTHESIA
     Dates: start: 20090902, end: 20090902
  4. FENTANYL-100 [Concomitant]
     Indication: SURGERY
  5. OXYGEN [Concomitant]
     Indication: ANAESTHESIA
  6. NITROUS OXIDE [Concomitant]
     Indication: ANAESTHESIA
     Dates: start: 20090902, end: 20090902

REACTIONS (2)
  - HEPATIC ENZYME INCREASED [None]
  - JAUNDICE [None]
